FAERS Safety Report 4935157-7 (Version None)
Quarter: 2006Q1

REPORT INFORMATION
  Report Type: 
  Country: None (occurrence: None)
  Receive Date: 20060306
  Receipt Date: 20060306
  Transmission Date: 20060701
  Serious: Yes (Life-Threatening, Hospitalization)
  Sender: FDA-Public Use
  Company Number: None

PATIENT
  Age: 45 Year
  Sex: Female
  Weight: 54.8852 kg

DRUGS (3)
  1. BEVACIZUMAB 15MG/KG [Suspect]
     Indication: GASTRIC CANCER
     Dosage: 859 MG EVERY 21 DAYS INTRAVENOUS DRIP
     Route: 041
     Dates: start: 20060110, end: 20060222
  2. OXALIPLATIN 75MG/M2 [Suspect]
     Indication: GASTRIC CANCER
     Dosage: 115 MG EVERY 21 DAYS INTRAVENOUS DRIP
     Route: 041
     Dates: start: 20060110, end: 20060222
  3. DOCETAXEL 70MG/M2 [Suspect]
     Indication: GASTRIC CANCER
     Dosage: 107 MG EVERY 21 DAYS INTRAVENOUS DRIP
     Route: 041
     Dates: start: 20060110, end: 20060222

REACTIONS (1)
  - INTESTINAL PERFORATION [None]
